FAERS Safety Report 25271499 (Version 2)
Quarter: 2025Q2

REPORT INFORMATION
  Report Type: Report from Study
  Country: EG (occurrence: EG)
  Receive Date: 20250506
  Receipt Date: 20250609
  Transmission Date: 20250716
  Serious: Yes (Life-Threatening, Other)
  Sender: ROCHE
  Company Number: EG-002147023-NVSC2025EG070394

PATIENT
  Age: 51 Year
  Sex: Female
  Weight: 69 kg

DRUGS (3)
  1. XOLAIR [Suspect]
     Active Substance: OMALIZUMAB
     Indication: Urticaria
     Dosage: 150 MG, QMO (2 INJECTION EVERY MONTH)
     Route: 058
     Dates: start: 20250412
  2. ETHINYL ESTRADIOL\NORGESTIMATE [Concomitant]
     Active Substance: ETHINYL ESTRADIOL\NORGESTIMATE
  3. EBASTINE [Concomitant]
     Active Substance: EBASTINE

REACTIONS (4)
  - Asphyxia [Not Recovered/Not Resolved]
  - Skin swelling [Not Recovered/Not Resolved]
  - Histamine level increased [Unknown]
  - Pruritus [Not Recovered/Not Resolved]

NARRATIVE: CASE EVENT DATE: 20250601
